FAERS Safety Report 16413330 (Version 5)
Quarter: 2022Q4

REPORT INFORMATION
  Report Type: Spontaneous
  Country: US (occurrence: None)
  Receive Date: 20190611
  Receipt Date: 20221213
  Transmission Date: 20230113
  Serious: Yes (Disabling, Other)
  Sender: FDA-Public Use
  Company Number: 2018SF14939

PATIENT
  Age: 641 Month
  Sex: Male
  Weight: 145.2 kg

DRUGS (46)
  1. NEXIUM [Suspect]
     Active Substance: ESOMEPRAZOLE MAGNESIUM
     Indication: Gastrooesophageal reflux disease
     Route: 048
     Dates: start: 200908, end: 201802
  2. NEXIUM [Suspect]
     Active Substance: ESOMEPRAZOLE MAGNESIUM
     Indication: Gastrooesophageal reflux disease
     Route: 048
     Dates: start: 20090815, end: 20180203
  3. NEXIUM 24HR [Suspect]
     Active Substance: ESOMEPRAZOLE MAGNESIUM
     Indication: Gastrooesophageal reflux disease
     Route: 048
     Dates: start: 20140815, end: 20180203
  4. NEXIUM 24HR [Suspect]
     Active Substance: ESOMEPRAZOLE MAGNESIUM
     Indication: Gastrooesophageal reflux disease
     Route: 048
     Dates: start: 2014, end: 2018
  5. NEXIUM I.V. [Suspect]
     Active Substance: ESOMEPRAZOLE SODIUM
     Indication: Gastrooesophageal reflux disease
     Route: 042
     Dates: start: 2010
  6. PRILOSEC [Suspect]
     Active Substance: OMEPRAZOLE MAGNESIUM
     Indication: Gastrooesophageal reflux disease
     Route: 048
     Dates: start: 200908, end: 201802
  7. PRILOSEC [Suspect]
     Active Substance: OMEPRAZOLE MAGNESIUM
     Indication: Gastrooesophageal reflux disease
     Route: 048
     Dates: start: 20090815, end: 20180203
  8. PRILOSEC [Suspect]
     Active Substance: OMEPRAZOLE MAGNESIUM
     Indication: Gastrooesophageal reflux disease
     Dosage: GENERIC
     Route: 065
     Dates: start: 20150401, end: 20180331
  9. PRILOSEC [Suspect]
     Active Substance: OMEPRAZOLE MAGNESIUM
     Indication: Gastrooesophageal reflux disease
     Route: 048
     Dates: start: 20090815, end: 20180203
  10. PRILOSEC OTC [Suspect]
     Active Substance: OMEPRAZOLE MAGNESIUM
     Indication: Gastrooesophageal reflux disease
     Route: 048
     Dates: start: 200908, end: 201802
  11. PRILOSEC OTC [Suspect]
     Active Substance: OMEPRAZOLE MAGNESIUM
     Indication: Gastrooesophageal reflux disease
     Route: 048
     Dates: start: 20090815, end: 20180203
  12. PREVACID [Suspect]
     Active Substance: LANSOPRAZOLE
     Indication: Gastrooesophageal reflux disease
     Route: 065
     Dates: start: 200908, end: 201802
  13. PREVACID [Suspect]
     Active Substance: LANSOPRAZOLE
     Indication: Gastrooesophageal reflux disease
     Route: 065
     Dates: start: 20090815, end: 20180203
  14. PREVACID 24 HR [Suspect]
     Active Substance: LANSOPRAZOLE
     Indication: Gastrooesophageal reflux disease
     Route: 065
     Dates: start: 20090815, end: 20180203
  15. CRESTOR [Concomitant]
     Active Substance: ROSUVASTATIN CALCIUM
     Indication: Blood cholesterol increased
     Dates: start: 20100501, end: 20100628
  16. PLAVIX [Concomitant]
     Active Substance: CLOPIDOGREL BISULFATE
     Indication: Coronary artery disease
     Dates: start: 20100501, end: 20110510
  17. METOPROLOL TARTRATE [Concomitant]
     Active Substance: METOPROLOL TARTRATE
  18. TRICOR [Concomitant]
     Active Substance: FENOFIBRATE
  19. ISOSORBIDE MONONITRATE [Concomitant]
     Active Substance: ISOSORBIDE MONONITRATE
  20. LISINOPRIL [Concomitant]
     Active Substance: LISINOPRIL
     Indication: Hypertension
     Dates: start: 20100421, end: 20180907
  21. AZITHROMYCIN [Concomitant]
     Active Substance: AZITHROMYCIN
     Indication: Bacterial infection
     Dates: start: 20111214
  22. CIPROFLOXACIN [Concomitant]
     Active Substance: CIPROFLOXACIN
     Indication: Bacterial infection
     Dates: start: 20120919, end: 20131125
  23. ALLOPURINOL [Concomitant]
     Active Substance: ALLOPURINOL
     Indication: Gout
     Dates: start: 20131231, end: 20180906
  24. ASPIRIN [Concomitant]
     Active Substance: ASPIRIN
     Dates: start: 2010
  25. PEPCID [Concomitant]
     Active Substance: FAMOTIDINE
     Dates: start: 2004, end: 2014
  26. ZANTAC [Concomitant]
     Active Substance: RANITIDINE HYDROCHLORIDE
     Dates: start: 2006, end: 2008
  27. MEGA RED [Concomitant]
     Indication: Blood cholesterol abnormal
     Dates: start: 2010
  28. VITAMINS [Concomitant]
     Active Substance: VITAMINS
     Indication: Routine health maintenance
     Dates: start: 1980
  29. MYLANTA [Concomitant]
     Active Substance: ALUMINUM HYDROXIDE\DIMETHICONE\MAGNESIUM HYDROXIDE
     Dates: start: 2000, end: 2010
  30. ROLAIDS [Concomitant]
     Active Substance: CALCIUM CARBONATE\MAGNESIUM HYDROXIDE
     Dates: start: 2000, end: 2010
  31. ATORVASTATIN [Concomitant]
     Active Substance: ATORVASTATIN
  32. VITAMIN D3 [Concomitant]
     Active Substance: CHOLECALCIFEROL
  33. LASIX [Concomitant]
     Active Substance: FUROSEMIDE
  34. LOPRESSOR [Concomitant]
     Active Substance: METOPROLOL TARTRATE
  35. NOVOLOG [Concomitant]
     Active Substance: INSULIN ASPART
  36. ULORIC [Concomitant]
     Active Substance: FEBUXOSTAT
  37. ALPRAZOLAM [Concomitant]
     Active Substance: ALPRAZOLAM
     Dates: start: 20100501
  38. CIALIS [Concomitant]
     Active Substance: TADALAFIL
     Dates: start: 20101222
  39. PRAVASTATIN SODIUM [Concomitant]
     Active Substance: PRAVASTATIN SODIUM
     Dates: start: 20110729
  40. FENOFIBRATE [Concomitant]
     Active Substance: FENOFIBRATE
     Dates: start: 20111001
  41. DOXAZOSIN MESYLATE [Concomitant]
     Active Substance: DOXAZOSIN MESYLATE
     Dates: start: 20130328
  42. CHLORTALIDONE/AMILORIDE HYDROCHLORIDE [Concomitant]
     Dates: start: 20170331
  43. CHLORTHALIDONE [Concomitant]
     Active Substance: CHLORTHALIDONE
     Dates: start: 20170331
  44. MAXIMUM [Concomitant]
     Dates: start: 20170331
  45. HUMULIN NOS [Concomitant]
     Active Substance: INSULIN HUMAN
     Dates: start: 20170331
  46. LEVEMIR [Concomitant]
     Active Substance: INSULIN DETEMIR
     Dates: start: 20170331

REACTIONS (8)
  - Chronic kidney disease [Not Recovered/Not Resolved]
  - Acute kidney injury [Not Recovered/Not Resolved]
  - End stage renal disease [Unknown]
  - Renal injury [Unknown]
  - Tubulointerstitial nephritis [Unknown]
  - Chronic kidney disease-mineral and bone disorder [Unknown]
  - Renal failure [Unknown]
  - Dyspepsia [Unknown]

NARRATIVE: CASE EVENT DATE: 20160901
